FAERS Safety Report 8290296-0 (Version None)
Quarter: 2012Q2

REPORT INFORMATION
  Report Type: 
  Country: None (occurrence: None)
  Receive Date: 20120417
  Receipt Date: 20120404
  Transmission Date: 20120825
  Serious: Yes (Hospitalization)
  Sender: FDA-Public Use
  Company Number: PHHO2012US000836

PATIENT
  Sex: Female
  Weight: 66.213 kg

DRUGS (5)
  1. TACROLIMUS [Suspect]
     Dosage: 2.0 MG, UNK
     Dates: start: 20091231
  2. MYCOPHENOLATE MOFETIL [Suspect]
     Indication: IMMUNOSUPPRESSION
     Dosage: 500 MG, QD
     Dates: start: 20091113, end: 20091119
  3. BACTRIM [Suspect]
     Indication: PROPHYLAXIS
     Dosage: 1 TAB M/W/F
     Dates: start: 20091023, end: 20091231
  4. ZORTRESS [Suspect]
     Indication: LIVER TRANSPLANT
     Dosage: 1 MG, BID
     Route: 048
     Dates: start: 20091120, end: 20091203
  5. TACROLIMUS [Suspect]
     Indication: LIVER TRANSPLANT
     Dosage: 1.0 MG, UNK
     Dates: start: 20091022, end: 20091026

REACTIONS (1)
  - PANCYTOPENIA [None]
